FAERS Safety Report 12522630 (Version 4)
Quarter: 2016Q3

REPORT INFORMATION
  Report Type: Report from Study
  Country: DE (occurrence: DE)
  Receive Date: 20160701
  Receipt Date: 20160729
  Transmission Date: 20161109
  Serious: Yes (Hospitalization)
  Sender: FDA-Public Use
  Company Number: DE-TAKEDA-2016TUS011494

PATIENT
  Sex: Female
  Weight: 39.9 kg

DRUGS (6)
  1. CALCITROL [Concomitant]
     Active Substance: CALCITRIOL
     Indication: PROPHYLAXIS
     Dosage: UNK
     Route: 048
  2. DEKRISTOL [Concomitant]
     Active Substance: CHOLECALCIFEROL
     Indication: PROPHYLAXIS
     Dosage: 20000 IU,
     Route: 048
  3. PEGINESATIDE [Suspect]
     Active Substance: PEGINESATIDE
     Indication: APLASIA PURE RED CELL
     Dosage: 0.44 ML, Q4WEEKS
     Route: 058
     Dates: start: 20060406, end: 20160616
  4. BISOPROLOL [Concomitant]
     Active Substance: BISOPROLOL
     Indication: HYPERTENSION
     Dosage: 2.5 MG, UNK
     Route: 048
  5. DREISAVIT                          /00844801/ [Concomitant]
     Indication: PROPHYLAXIS
     Dosage: UNK
     Route: 048
  6. BICANORM [Concomitant]
     Active Substance: SODIUM BICARBONATE
     Indication: ANTACID THERAPY
     Dosage: UNK, BID
     Route: 048

REACTIONS (1)
  - Anal prolapse [Recovered/Resolved with Sequelae]

NARRATIVE: CASE EVENT DATE: 20160625
